FAERS Safety Report 6108032-2 (Version None)
Quarter: 2009Q1

REPORT INFORMATION
  Report Type: 
  Country: None (occurrence: None)
  Receive Date: 20090305
  Receipt Date: 20090305
  Transmission Date: 20090719
  Serious: Yes (Other)
  Sender: FDA-Public Use
  Company Number: None

PATIENT
  Sex: Female
  Weight: 47.6277 kg

DRUGS (1)
  1. LEXAPRO [Suspect]

REACTIONS (11)
  - CHEST PAIN [None]
  - CHILLS [None]
  - CONVERSION DISORDER [None]
  - DRUG DEPENDENCE [None]
  - GENERAL PHYSICAL HEALTH DETERIORATION [None]
  - INCORRECT DRUG ADMINISTRATION DURATION [None]
  - MUSCLE TWITCHING [None]
  - NAUSEA [None]
  - PALPITATIONS [None]
  - PARAESTHESIA [None]
  - TREMOR [None]
